FAERS Safety Report 16608110 (Version 1)
Quarter: 2019Q3

REPORT INFORMATION
  Report Type: Spontaneous
  Country: AU (occurrence: AU)
  Receive Date: 20190722
  Receipt Date: 20190722
  Transmission Date: 20191004
  Serious: Yes (Other)
  Sender: FDA-Public Use
  Company Number: AU-BEH-2019104761

PATIENT
  Age: 52 Year
  Sex: Male
  Weight: 79 kg

DRUGS (6)
  1. PRIVIGEN [Suspect]
     Active Substance: HUMAN IMMUNOGLOBULIN G
     Dosage: 100 MILLILITER, SINGLE, 100ML/H
     Route: 042
     Dates: start: 20190710, end: 20190710
  2. PRIVIGEN [Suspect]
     Active Substance: HUMAN IMMUNOGLOBULIN G
     Dosage: 100ML AT 240ML/H
     Route: 042
     Dates: start: 20190710, end: 20190710
  3. PRIVIGEN [Suspect]
     Active Substance: HUMAN IMMUNOGLOBULIN G
     Dosage: 40 MILLILITER, SINGLE, 80ML/H
     Route: 042
     Dates: start: 20190710, end: 20190710
  4. PRIVIGEN [Suspect]
     Active Substance: HUMAN IMMUNOGLOBULIN G
     Dosage: 70 MILLILITER, SINGLE, 160ML/H
     Route: 042
     Dates: start: 20190710, end: 20190710
  5. PRIVIGEN [Suspect]
     Active Substance: HUMAN IMMUNOGLOBULIN G
     Dosage: 10 MILLILITER, SINGLE, 160ML/H
     Route: 042
     Dates: start: 20190710, end: 20190710
  6. PRIVIGEN [Suspect]
     Active Substance: HUMAN IMMUNOGLOBULIN G
     Dosage: 30 MILLILITER, SINGLE, 240ML/H
     Route: 042
     Dates: start: 20190710, end: 20190710

REACTIONS (3)
  - Tachycardia [Unknown]
  - Vomiting [Unknown]
  - Pyrexia [Unknown]

NARRATIVE: CASE EVENT DATE: 20190710
